FAERS Safety Report 13090026 (Version 2)
Quarter: 2017Q1

REPORT INFORMATION
  Report Type: Spontaneous
  Country: US (occurrence: US)
  Receive Date: 20170105
  Receipt Date: 20170123
  Transmission Date: 20170428
  Serious: Yes (Other)
  Sender: FDA-Public Use
  Company Number: US-VIIV HEALTHCARE LIMITED-US2017000890

PATIENT
  Sex: Male
  Weight: 76.19 kg

DRUGS (1)
  1. TRIUMEQ [Suspect]
     Active Substance: ABACAVIR SULFATE\DOLUTEGRAVIR SODIUM\LAMIVUDINE
     Indication: HIV TEST POSITIVE
     Dosage: 1 DF, QD
     Route: 048
     Dates: start: 20160801, end: 20161111

REACTIONS (4)
  - Jaundice [Unknown]
  - Chromaturia [Unknown]
  - Hepatic failure [Not Recovered/Not Resolved]
  - Blood bilirubin increased [Unknown]
